FAERS Safety Report 17591306 (Version 1)
Quarter: 2020Q1

REPORT INFORMATION
  Report Type: Spontaneous
  Country: CO (occurrence: CO)
  Receive Date: 20200327
  Receipt Date: 20200327
  Transmission Date: 20200409
  Serious: Yes (Other)
  Sender: FDA-Public Use
  Company Number: CO-PFIZER INC-2020129701

PATIENT
  Sex: Female

DRUGS (2)
  1. SUTENT [Suspect]
     Active Substance: SUNITINIB MALATE
     Indication: RENAL CANCER METASTATIC
     Dosage: 50 MG, CYCLIC (REST 7 DAYS)
     Route: 048
     Dates: start: 20181123, end: 201906
  2. SUTENT [Suspect]
     Active Substance: SUNITINIB MALATE
     Dosage: 37.5 MG, CYCLIC (REST 7 DAYS)
     Dates: start: 201906

REACTIONS (9)
  - Decreased immune responsiveness [Unknown]
  - Pain [Unknown]
  - Burns first degree [Unknown]
  - Decreased appetite [Unknown]
  - Vomiting [Unknown]
  - Palmar-plantar erythrodysaesthesia syndrome [Unknown]
  - Diarrhoea [Unknown]
  - Burns second degree [Unknown]
  - Asthenia [Unknown]

NARRATIVE: CASE EVENT DATE: 201906
